FAERS Safety Report 9887767 (Version 2)
Quarter: 2015Q2

REPORT INFORMATION
  Report Type: Spontaneous
  Country: US (occurrence: US)
  Receive Date: 20140211
  Receipt Date: 20150420
  Transmission Date: 20150821
  Serious: Yes (Other)
  Sender: FDA-Public Use
  Company Number: US-009507513-1402USA004272

PATIENT
  Sex: Female
  Weight: 110.2 kg

DRUGS (1)
  1. NUVARING [Suspect]
     Active Substance: ETHINYL ESTRADIOL\ETONOGESTREL
     Indication: POLYCYSTIC OVARIES
     Dosage: INSERT 1 RING VAGINALLY X3 WEEKS, REMOVE X1 WEEK, THEN REPLACE
     Route: 067
     Dates: start: 20120801, end: 20130521

REACTIONS (7)
  - Flank pain [Unknown]
  - Arthralgia [Unknown]
  - Off label use [Unknown]
  - Pneumonia [Unknown]
  - Pulmonary embolism [Unknown]
  - Deep vein thrombosis [Unknown]
  - Pulmonary infarction [Unknown]

NARRATIVE: CASE EVENT DATE: 20120801
